FAERS Safety Report 8140507-7 (Version None)
Quarter: 2012Q1

REPORT INFORMATION
  Report Type: 
  Country: None (occurrence: None)
  Receive Date: 20120216
  Receipt Date: 20120209
  Transmission Date: 20120608
  Serious: Yes (Death, Hospitalization)
  Sender: FDA-Public Use
  Company Number: US-CELGENEUS-163-21880-11112251

PATIENT
  Sex: Male
  Weight: 87.168 kg

DRUGS (17)
  1. STOOL SOFTENER [Concomitant]
     Indication: CONSTIPATION
     Route: 065
  2. ASPIRIN [Concomitant]
     Dosage: 81 MILLIGRAM
     Route: 048
  3. OPIATES [Concomitant]
     Indication: PAIN
     Route: 065
  4. ALLEGRA [Concomitant]
     Dosage: 180 MILLIGRAM
     Route: 048
  5. MAGNESIUM ACETATE [Concomitant]
     Route: 065
  6. CALCIUM CITRATE [Concomitant]
     Indication: MINERAL SUPPLEMENTATION
     Dosage: 950 MILLIGRAM
     Route: 048
  7. MICRO-K [Concomitant]
     Dosage: 2 CAPSULE
     Route: 048
  8. MULTI-VITAMINS [Concomitant]
     Indication: VITAMIN SUPPLEMENTATION
     Route: 048
  9. ZOMETA [Concomitant]
     Dosage: 4 MILLIGRAM
     Route: 041
  10. REVLIMID [Suspect]
     Indication: MULTIPLE MYELOMA
     Dosage: 25 MILLIGRAM
     Route: 048
     Dates: start: 20110928, end: 20111101
  11. PERCOCET [Concomitant]
     Indication: PAIN
     Dosage: 5-325
     Route: 048
  12. NITROSTAT [Concomitant]
     Indication: CHEST PAIN
     Route: 060
  13. DOLOPHINE HCL [Concomitant]
     Dosage: 10 MILLIGRAM
     Route: 065
  14. CRESTOR [Concomitant]
     Route: 048
  15. DECADRON [Concomitant]
     Route: 048
  16. ZOVIRAX [Concomitant]
     Dosage: 800 MILLIGRAM
     Route: 048
  17. PRILOSEC [Concomitant]
     Dosage: 20 MILLIGRAM
     Route: 048

REACTIONS (3)
  - SUDDEN DEATH [None]
  - CONSTIPATION [None]
  - NEUROPATHY PERIPHERAL [None]
